FAERS Safety Report 8854953 (Version 3)
Quarter: 2012Q4

REPORT INFORMATION
  Report Type: 
  Country: US (occurrence: US)
  Receive Date: 20121023
  Receipt Date: 20121024
  Transmission Date: 20130627
  Serious: No
  Sender: FDA-Public Use
  Company Number: US-PFIZER INC-2012261992

PATIENT
  Age: 29 Year
  Sex: Female
  Weight: 65.76 kg

DRUGS (2)
  1. LYRICA [Suspect]
     Indication: PAIN
     Dosage: 75 mg, 2x/day
     Dates: start: 200809, end: 201210
  2. FEMARA [Concomitant]
     Indication: ENDOMETRIOSIS
     Dosage: 2.5 mg, 1x/day

REACTIONS (2)
  - Withdrawal syndrome [Unknown]
  - Pain [Not Recovered/Not Resolved]
